FAERS Safety Report 17899639 (Version 2)
Quarter: 2020Q2

REPORT INFORMATION
  Report Type: Report from Study
  Country: None (occurrence: FR)
  Receive Date: 20200616
  Receipt Date: 20200619
  Transmission Date: 20200714
  Serious: Yes (Other)
  Sender: FDA-Public Use
  Company Number: FR-ABBVIE-20K-056-3446449-00

PATIENT
  Age: 69 Year
  Sex: Male

DRUGS (2)
  1. DUODOPA [Suspect]
     Active Substance: CARBIDOPA\LEVODOPA
     Dosage: MD: 14 ML; CRD: 5.3 ML/H; ED: 3 ML
     Route: 050
     Dates: start: 201703
  2. DUODOPA [Suspect]
     Active Substance: CARBIDOPA\LEVODOPA
     Indication: PARKINSON^S DISEASE
     Dosage: MORNING DOSE: 14 ML; CONTINUOUS FLOW RATE: 5.3 ML/H; EXTRA DOSE: 3ML
     Route: 050
     Dates: start: 20170328, end: 201703

REACTIONS (3)
  - Embedded device [Not Recovered/Not Resolved]
  - Device related infection [Not Recovered/Not Resolved]
  - Abdominal wall infection [Not Recovered/Not Resolved]

NARRATIVE: CASE EVENT DATE: 2020
